FAERS Safety Report 7954053-4 (Version None)
Quarter: 2011Q4

REPORT INFORMATION
  Report Type: 
  Country: None (occurrence: None)
  Receive Date: 20111129
  Receipt Date: 20111118
  Transmission Date: 20120403
  Serious: Yes (Other)
  Sender: FDA-Public Use
  Company Number: 2011-01315

PATIENT
  Age: 64 Year
  Sex: Female

DRUGS (2)
  1. ZICAM COLD REMEDY ZAVORS [Suspect]
     Dosage: 6 DAILY FOR 2-3 DAYS
     Dates: start: 20111001, end: 20111001
  2. ASPIRIN OR IBUPROFEN [Concomitant]

REACTIONS (3)
  - EAR CONGESTION [None]
  - MENIERE'S DISEASE [None]
  - VISION BLURRED [None]
